FAERS Safety Report 9577452 (Version 1)
Quarter: 2013Q4

REPORT INFORMATION
  Report Type: Spontaneous
  Country: US (occurrence: US)
  Receive Date: 20131001
  Receipt Date: 20131001
  Transmission Date: 20140711
  Serious: No
  Sender: FDA-Public Use
  Company Number: US-AMGEN-USASP2013007856

PATIENT
  Age: 60 Year
  Sex: Female
  Weight: 66.21 kg

DRUGS (12)
  1. ENBREL [Suspect]
     Indication: PRODUCT USED FOR UNKNOWN INDICATION
     Dosage: 50 MG, QWK
     Route: 058
  2. ARAVA [Concomitant]
     Dosage: UNK
  3. CELEBREX [Concomitant]
     Dosage: 200 MG, UNK
  4. PAXIL                              /00500401/ [Concomitant]
     Dosage: 20 MG, UNK
  5. LIPITOR [Concomitant]
     Dosage: 20 MG, UNK
  6. DULERA [Concomitant]
     Dosage: 100-5 MUG, UNK
  7. ALBUTEROL                          /00139501/ [Concomitant]
     Dosage: 90 MUG, UNK
  8. TOPROL [Concomitant]
     Dosage: 50 MG, UNK
  9. THEOPHYLLINE [Concomitant]
     Dosage: 125 MG, UNK
  10. MUCINEX [Concomitant]
     Dosage: 60-600 MG, UNK
  11. SPIRIVA HANDIHALER [Concomitant]
     Dosage: UNK
  12. VITAMIN D                          /00107901/ [Concomitant]
     Dosage: 1000 UNIT, UNK

REACTIONS (2)
  - Influenza [Unknown]
  - Pneumonia [Unknown]
